FAERS Safety Report 13272496 (Version 1)
Quarter: 2017Q1

REPORT INFORMATION
  Report Type: Spontaneous
  Country: US (occurrence: US)
  Receive Date: 20170225
  Receipt Date: 20170225
  Transmission Date: 20170428
  Serious: Yes (Other)
  Sender: FDA-Public Use
  Company Number: None

PATIENT
  Age: 57 Year
  Sex: Female
  Weight: 62.55 kg

DRUGS (8)
  1. OPANA ER [Concomitant]
     Active Substance: OXYMORPHONE HYDROCHLORIDE
  2. OXYCODONE [Concomitant]
     Active Substance: OXYCODONE
  3. OXYCODONE HCL 15MG [Suspect]
     Active Substance: OXYCODONE HYDROCHLORIDE
     Indication: OSTEOARTHRITIS
     Dosage: ?          QUANTITY:120 TABLET(S);?
     Route: 048
     Dates: start: 20170212, end: 20170225
  4. ZONISAMIDE. [Concomitant]
     Active Substance: ZONISAMIDE
  5. OXYCODONE HCL 15MG [Suspect]
     Active Substance: OXYCODONE HYDROCHLORIDE
     Indication: BREAKTHROUGH PAIN
     Dosage: ?          QUANTITY:120 TABLET(S);?
     Route: 048
     Dates: start: 20170212, end: 20170225
  6. OXYCODONE HCL 15MG [Suspect]
     Active Substance: OXYCODONE HYDROCHLORIDE
     Indication: SPINAL OSTEOARTHRITIS
     Dosage: ?          QUANTITY:120 TABLET(S);?
     Route: 048
     Dates: start: 20170212, end: 20170225
  7. ZANAFLEX [Concomitant]
     Active Substance: TIZANIDINE HYDROCHLORIDE
  8. MAXALT [Concomitant]
     Active Substance: RIZATRIPTAN BENZOATE

REACTIONS (3)
  - Eye swelling [None]
  - Product substitution issue [None]
  - Ocular hyperaemia [None]

NARRATIVE: CASE EVENT DATE: 20170215
